FAERS Safety Report 10389130 (Version 1)
Quarter: 2014Q3

REPORT INFORMATION
  Report Type: Spontaneous
  Country: JP (occurrence: JP)
  Receive Date: 20140817
  Receipt Date: 20140817
  Transmission Date: 20150326
  Serious: Yes (Other)
  Sender: FDA-Public Use
  Company Number: PHHY2013JP161073

PATIENT
  Age: 70 Year
  Sex: Female

DRUGS (3)
  1. EPIRUBICIN [Concomitant]
     Active Substance: EPIRUBICIN
     Dosage: 200 MG, UNK
  2. AFINITOR [Suspect]
     Active Substance: EVEROLIMUS
     Indication: PANCREATIC NEUROENDOCRINE TUMOUR
     Dosage: 10 MG, DAILY
     Dates: start: 201212
  3. SANDOSTATIN LAR DEPOT [Suspect]
     Active Substance: OCTREOTIDE ACETATE
     Dates: start: 201212

REACTIONS (2)
  - Interstitial lung disease [Unknown]
  - Metastases to bone [Unknown]

NARRATIVE: CASE EVENT DATE: 201302
